FAERS Safety Report 6380780-9 (Version None)
Quarter: 2009Q3

REPORT INFORMATION
  Report Type: 
  Country: None (occurrence: None)
  Receive Date: 20090924
  Receipt Date: 20090908
  Transmission Date: 20100115
  Serious: Yes (Hospitalization)
  Sender: FDA-Public Use
  Company Number: 8052155

PATIENT
  Age: 26 Year
  Sex: Female

DRUGS (6)
  1. PREDNISOLONE [Suspect]
     Indication: ANTIPHOSPHOLIPID SYNDROME
     Dosage: 9 MG /D
  2. PREDNISOLONE [Suspect]
     Indication: SYSTEMIC LUPUS ERYTHEMATOSUS
     Dosage: 9 MG /D
  3. PREDNISOLONE [Suspect]
     Indication: ANTIPHOSPHOLIPID SYNDROME
  4. PREDNISOLONE [Suspect]
     Indication: SYSTEMIC LUPUS ERYTHEMATOSUS
  5. ASPIRIN [Suspect]
     Indication: ANTIPHOSPHOLIPID SYNDROME
  6. ASPIRIN [Suspect]
     Indication: SYSTEMIC LUPUS ERYTHEMATOSUS

REACTIONS (14)
  - ABDOMINAL PAIN UPPER [None]
  - C-REACTIVE PROTEIN INCREASED [None]
  - DISSEMINATED INTRAVASCULAR COAGULATION [None]
  - DRUG EXPOSURE DURING PREGNANCY [None]
  - HAEMATURIA [None]
  - HEART RATE INCREASED [None]
  - HEPATIC FUNCTION ABNORMAL [None]
  - HEPATIC INFARCTION [None]
  - INTRA-UTERINE DEATH [None]
  - LEUKOCYTOSIS [None]
  - PLACENTAL INFARCTION [None]
  - PYREXIA [None]
  - THROMBOCYTOPENIA [None]
  - THROMBOSIS [None]
